FAERS Safety Report 7082453-6 (Version None)
Quarter: 2010Q3

REPORT INFORMATION
  Report Type: 
  Country: None (occurrence: None)
  Receive Date: 20100929
  Receipt Date: 20100708
  Transmission Date: 20110219
  Serious: No
  Sender: FDA-Public Use
  Company Number: US-WYE-H16339810

PATIENT
  Age: 57 Year
  Sex: Female
  Weight: 77.18 kg

DRUGS (2)
  1. PRISTIQ [Suspect]
     Indication: DEPRESSION
     Dosage: 100 MG 1X PER 1 DAY, 50 MG 1X PER 1 DAY
     Dates: start: 20100101, end: 20100617
  2. PRISTIQ [Suspect]
     Indication: DEPRESSION
     Dosage: 100 MG 1X PER 1 DAY, 50 MG 1X PER 1 DAY
     Dates: start: 20100618

REACTIONS (3)
  - ALOPECIA [None]
  - DRUG EFFECT DECREASED [None]
  - TREMOR [None]
